FAERS Safety Report 4300214-5 (Version None)
Quarter: 2004Q1

REPORT INFORMATION
  Report Type: 
  Country: None (occurrence: None)
  Receive Date: 20040218
  Receipt Date: 20040203
  Transmission Date: 20041129
  Serious: Yes (Hospitalization)
  Sender: FDA-Public Use
  Company Number: THYR-10153

PATIENT
  Age: 85 Year
  Sex: Female

DRUGS (4)
  1. THYROGEN [Suspect]
     Indication: DIAGNOSTIC PROCEDURE
     Dosage: 0.9 MG QD IM
     Route: 030
     Dates: start: 20040126, end: 20040127
  2. COUMADIN [Concomitant]
  3. AMIODARONE [Concomitant]
  4. CYTOMEL [Concomitant]

REACTIONS (8)
  - BLOOD THYROID STIMULATING HORMONE INCREASED [None]
  - GASTRITIS EROSIVE [None]
  - GASTROINTESTINAL HAEMORRHAGE [None]
  - HAEMORRHAGE [None]
  - INTERNATIONAL NORMALISED RATIO INCREASED [None]
  - NECK MASS [None]
  - PYREXIA [None]
  - SYNCOPE [None]
